FAERS Safety Report 9641769 (Version 2)
Quarter: 2013Q4

REPORT INFORMATION
  Report Type: Spontaneous
  Country: DK (occurrence: None)
  Receive Date: 20131021
  Receipt Date: 20131129
  Transmission Date: 20140711
  Serious: Yes (Hospitalization, Disabling)
  Sender: FDA-Public Use
  Company Number: 1955889

PATIENT
  Age: 62 Year
  Sex: Female

DRUGS (2)
  1. OXALIPLATIN [Suspect]
     Indication: COLORECTAL CANCER
     Dosage: UNKNOWN, UNKNOWN, UNKNOWN
     Dates: start: 20121114, end: 20130305
  2. CAPECITABINE [Suspect]
     Indication: COLORECTAL CANCER
     Dosage: UNKNOWN, UNKNOWN, UNKNOWN
     Route: 048
     Dates: start: 20121114, end: 20130416

REACTIONS (5)
  - Myopathy [None]
  - Myositis [None]
  - Myalgia [None]
  - Muscular weakness [None]
  - Polymyositis [None]
